FAERS Safety Report 7606725-9 (Version None)
Quarter: 2011Q3

REPORT INFORMATION
  Report Type: 
  Country: None (occurrence: None)
  Receive Date: 20110713
  Receipt Date: 20110708
  Transmission Date: 20111222
  Serious: Yes (Death, Life-Threatening, Hospitalization)
  Sender: FDA-Public Use
  Company Number: FR-MERCK-1107FRA00038

PATIENT
  Age: 48 Year
  Sex: Male

DRUGS (1)
  1. ISENTRESS [Suspect]
     Route: 048
     Dates: start: 20100417

REACTIONS (1)
  - DEATH [None]
